FAERS Safety Report 7474550-8 (Version None)
Quarter: 2011Q1

REPORT INFORMATION
  Report Type: 
  Country: None (occurrence: None)
  Receive Date: 20110302
  Receipt Date: 20100923
  Transmission Date: 20110831
  Serious: Yes (Death, Hospitalization, Other)
  Sender: FDA-Public Use
  Company Number: 163-21880-10071373

PATIENT
  Age: 57 Year
  Sex: Male

DRUGS (15)
  1. IBUPROFEN [Suspect]
     Indication: PAIN
     Dosage: 1000 MG, 3-4 TMES DAILY
  2. DOXIL [Concomitant]
  3. ZOMETA [Concomitant]
  4. DECADRON [Concomitant]
  5. DARVOCET [Concomitant]
  6. METFORMIN HCL (METFORMIN HYDROCHLORIDE) [Concomitant]
  7. ZYRTEC [Concomitant]
  8. LISINOPRIL [Concomitant]
  9. PREDNISONE [Concomitant]
  10. REVLIMID [Suspect]
     Indication: MULTIPLE MYELOMA
     Dosage: 25 MG, DAILY FOR 21 DAYS ON THEN 7 DAYS OFF, PO
     Route: 048
     Dates: start: 20080710, end: 20100708
  11. IRON (IRON) [Concomitant]
  12. VELCADE [Concomitant]
  13. TRAVATAN [Concomitant]
  14. PROTONIX [Concomitant]
  15. VITAMIN D [Concomitant]

REACTIONS (5)
  - GASTROINTESTINAL HAEMORRHAGE [None]
  - ANAEMIA [None]
  - DISEASE PROGRESSION [None]
  - PNEUMOCYSTIS JIROVECI PNEUMONIA [None]
  - DRUG INEFFECTIVE [None]
